FAERS Safety Report 4379768-9 (Version None)
Quarter: 2004Q2

REPORT INFORMATION
  Report Type: 
  Country: None (occurrence: None)
  Receive Date: 20040617
  Receipt Date: 20040614
  Transmission Date: 20050107
  Serious: Yes (Life-Threatening)
  Sender: FDA-Public Use
  Company Number: JP-JNJFOC-20040506900

PATIENT
  Sex: Female

DRUGS (12)
  1. ITRIZOLE [Suspect]
     Indication: URINARY TRACT INFECTION
     Route: 049
  2. ITRIZOLE [Suspect]
     Indication: CANDIDIASIS
     Route: 049
  3. GEBEN [Suspect]
     Indication: THERMAL BURN
     Route: 061
  4. VANCOMYCIN HYDROCHLORIDE [Suspect]
     Indication: PNEUMONIA
     Route: 041
  5. TAKEPRON [Suspect]
     Indication: GASTRIC ULCER
     Route: 049
  6. MEROPEN [Concomitant]
     Indication: PNEUMONIA
     Route: 041
  7. AMIKAMYCIN [Concomitant]
     Indication: PNEUMONIA
     Route: 041
  8. CONIEL [Concomitant]
     Indication: HYPERTENSION
     Route: 049
  9. DOPAMINE HYDROCHLORIDE [Concomitant]
     Indication: THERMAL BURN
     Route: 049
  10. HEPARIN SODIUM [Concomitant]
     Indication: THERMAL BURN
  11. BUCLADESINE SODIUM [Concomitant]
     Indication: THERMAL BURN
     Route: 061
  12. GENTAMICIN SULFATE [Concomitant]
     Indication: THERMAL BURN
     Route: 061

REACTIONS (6)
  - CANDIDURIA [None]
  - DRUG INTERACTION [None]
  - LEUKOPENIA [None]
  - PNEUMONIA [None]
  - THERMAL BURN [None]
  - URINARY TRACT INFECTION FUNGAL [None]
